FAERS Safety Report 7302325-9 (Version None)
Quarter: 2011Q1

REPORT INFORMATION
  Report Type: 
  Country: None (occurrence: None)
  Receive Date: 20110218
  Receipt Date: 20110215
  Transmission Date: 20110831
  Serious: Yes (Hospitalization)
  Sender: FDA-Public Use
  Company Number: GB-PFIZER INC-2011034001

PATIENT
  Age: 44 Year
  Sex: Male

DRUGS (6)
  1. ACETYLSALICYLIC ACID [Concomitant]
  2. GLICLAZIDE [Concomitant]
  3. FENOFIBRATE [Suspect]
     Indication: HYPERCHOLESTEROLAEMIA
     Dosage: 160 MG, 2X/DAY
     Route: 048
     Dates: start: 20100201
  4. LANSOPRAZOLE [Concomitant]
  5. ATORVASTATIN CALCIUM [Suspect]
     Indication: HYPERCHOLESTEROLAEMIA
     Dosage: 80 MG, 2X/DAY
     Route: 048
     Dates: start: 20100201
  6. METFORMIN [Concomitant]

REACTIONS (1)
  - PANCREATITIS [None]
